FAERS Safety Report 5834485-0 (Version None)
Quarter: 2008Q3

REPORT INFORMATION
  Report Type: 
  Country: None (occurrence: None)
  Receive Date: 20080805
  Receipt Date: 20080804
  Transmission Date: 20090109
  Serious: Yes (Life-Threatening, Hospitalization, Other)
  Sender: FDA-Public Use
  Company Number: JP-BOEHRINGER INGELHEIM GMBH, GERMANY-2008-BP-10956NB

PATIENT
  Sex: Female
  Weight: 51 kg

DRUGS (2)
  1. MICARDIS [Suspect]
     Indication: HYPERTENSION
     Route: 048
     Dates: start: 20060426, end: 20070922
  2. PRAVASTATIN [Concomitant]
     Route: 048
     Dates: start: 20060602

REACTIONS (2)
  - ASCITES [None]
  - PANCREATIC CARCINOMA [None]
